FAERS Safety Report 9192780 (Version 1)
Quarter: 2013Q1

REPORT INFORMATION
  Report Type: Spontaneous
  Country: US (occurrence: None)
  Receive Date: 20130325
  Receipt Date: 20130325
  Transmission Date: 20140127
  Serious: Yes (Hospitalization)
  Sender: FDA-Public Use
  Company Number: None

PATIENT
  Sex: Female
  Weight: 93 kg

DRUGS (1)
  1. CISPLATIN [Suspect]
     Dates: start: 20130211

REACTIONS (2)
  - Nausea [None]
  - Vomiting [None]
